FAERS Safety Report 6461463-3 (Version None)
Quarter: 2009Q4

REPORT INFORMATION
  Report Type: 
  Country: None (occurrence: None)
  Receive Date: 20091123
  Receipt Date: 20091111
  Transmission Date: 20100525
  Serious: Yes (Other)
  Sender: FDA-Public Use
  Company Number: AU-1171565

PATIENT
  Sex: Female

DRUGS (1)
  1. TRIESENCE [Suspect]
     Dosage: INTRAOCULAR
     Route: 031
     Dates: start: 20091019, end: 20091019

REACTIONS (2)
  - BLINDNESS UNILATERAL [None]
  - OPTIC ISCHAEMIC NEUROPATHY [None]
